FAERS Safety Report 8517222-0 (Version None)
Quarter: 2012Q3

REPORT INFORMATION
  Report Type: 
  Country: None (occurrence: None)
  Receive Date: 20120718
  Receipt Date: 20120706
  Transmission Date: 20120928
  Serious: No
  Sender: FDA-Public Use
  Company Number: US-BAYER-2012-067801

PATIENT
  Age: 49 Year
  Sex: Female
  Weight: 68 kg

DRUGS (7)
  1. BUPROPION HCL [Concomitant]
     Dosage: 100 MG, UNK
  2. LEXAPRO [Concomitant]
     Dosage: 20 MG, UNK
  3. AMPYRA [Concomitant]
     Dosage: 10 MG, UNK
  4. PROVIGIL [Concomitant]
     Dosage: 200 MG, UNK
  5. ALPHAGAN [Concomitant]
  6. TIMOLOL MALEATE [Concomitant]
  7. BETASERON [Suspect]
     Dosage: .3 MG, UNK
     Dates: end: 20120529

REACTIONS (1)
  - DEPRESSION [None]
